FAERS Safety Report 15489356 (Version 1)
Quarter: 2018Q4

REPORT INFORMATION
  Report Type: Spontaneous
  Country: US (occurrence: US)
  Receive Date: 20181011
  Receipt Date: 20181011
  Transmission Date: 20190205
  Serious: Yes (Other)
  Sender: FDA-Public Use
  Company Number: US-MYLANLABS-2018M1072885

PATIENT
  Age: 74 Year
  Sex: Female

DRUGS (1)
  1. LATANOPROST. [Suspect]
     Active Substance: LATANOPROST
     Indication: GLAUCOMA
     Dosage: 1 DROP EVERY NIGHT IN THE LEFT EYE (0.005%)
     Route: 047

REACTIONS (3)
  - Corneal oedema [Not Recovered/Not Resolved]
  - Corneal degeneration [Unknown]
  - Visual impairment [Unknown]
